FAERS Safety Report 7832366-4 (Version None)
Quarter: 2011Q4

REPORT INFORMATION
  Report Type: 
  Country: None (occurrence: None)
  Receive Date: 20111022
  Receipt Date: 20111014
  Transmission Date: 20120403
  Serious: Yes (Other)
  Sender: FDA-Public Use
  Company Number: US-BAYER-2011-100273

PATIENT
  Age: 76 Year
  Sex: Female
  Weight: 62 kg

DRUGS (3)
  1. THYROID TAB [Concomitant]
  2. ANASTROZOLE [Concomitant]
  3. ASPIRIN [Suspect]
     Dosage: 2 DF, QD
     Route: 048
     Dates: start: 20110803, end: 20110916

REACTIONS (1)
  - TINNITUS [None]
